FAERS Safety Report 12218362 (Version 2)
Quarter: 2016Q2

REPORT INFORMATION
  Report Type: Spontaneous
  Country: CH (occurrence: CH)
  Receive Date: 20160329
  Receipt Date: 20160420
  Transmission Date: 20160815
  Serious: Yes (Other)
  Sender: FDA-Public Use
  Company Number: CH-SHIRE-CH201603549

PATIENT
  Age: 64 Year
  Sex: Male

DRUGS (7)
  1. MARCOUMAR [Suspect]
     Active Substance: PHENPROCOUMON
     Dosage: UNK
     Route: 065
  2. FIRAZYR [Suspect]
     Active Substance: ICATIBANT ACETATE
     Indication: HEREDITARY ANGIOEDEMA
     Dosage: 30 MG, AS REQ^D
     Route: 058
     Dates: start: 20150121
  3. LANOXIN [Concomitant]
     Active Substance: DIGOXIN
     Indication: PRODUCT USED FOR UNKNOWN INDICATION
     Dosage: 0.05 ?G, UNKNOWN
     Route: 065
  4. DANAZOL. [Concomitant]
     Active Substance: DANAZOL
     Indication: HEREDITARY ANGIOEDEMA
     Dosage: 100 MG, UNKNOWN (PER DAY)
     Route: 065
  5. METO ZEROK [Concomitant]
     Active Substance: METOPROLOL SUCCINATE
     Indication: PRODUCT USED FOR UNKNOWN INDICATION
     Dosage: UNK, UNKNOWN
     Route: 065
  6. MARCOUMAR [Suspect]
     Active Substance: PHENPROCOUMON
     Indication: ANTICOAGULANT THERAPY
     Dosage: UNK UNK ( 2 1/4 TABLET), UNKNOWN (PER WEEK)
     Route: 065
  7. MARCOUMAR [Suspect]
     Active Substance: PHENPROCOUMON
     Indication: THROMBOSIS
     Dosage: UNK (1/2 TABLET), UNKNOWN
     Route: 065

REACTIONS (2)
  - Drug interaction [Unknown]
  - International normalised ratio abnormal [Recovered/Resolved]
